FAERS Safety Report 5899107-1 (Version None)
Quarter: 2008Q3

REPORT INFORMATION
  Report Type: 
  Country: None (occurrence: None)
  Receive Date: 20080925
  Receipt Date: 20080918
  Transmission Date: 20090109
  Serious: Yes (Other)
  Sender: FDA-Public Use
  Company Number: US-WYE-H06046508

PATIENT
  Sex: Female
  Weight: 80.36 kg

DRUGS (2)
  1. PREMARIN [Suspect]
     Indication: UTERINE HAEMORRHAGE
     Dosage: TWO DOSES OF 25 MG, ONE AT 1 AM AND THE OTHER AT 7 AM
     Route: 042
     Dates: start: 20080917, end: 20080917
  2. LOESTRIN 1.5/30 [Concomitant]
     Indication: MENSTRUATION IRREGULAR
     Dosage: UNSPECIFIED DOSE DAILY
     Route: 065

REACTIONS (5)
  - DRUG INEFFECTIVE [None]
  - FATIGUE [None]
  - JAUNDICE [None]
  - NAUSEA [None]
  - VOMITING [None]
